FAERS Safety Report 13782481 (Version 1)
Quarter: 2017Q3

REPORT INFORMATION
  Report Type: Spontaneous
  Country: DE (occurrence: DE)
  Receive Date: 20170724
  Receipt Date: 20170724
  Transmission Date: 20171127
  Serious: Yes (Hospitalization)
  Sender: FDA-Public Use
  Company Number: DE-TEVA-788572GER

PATIENT
  Sex: Male

DRUGS (1)
  1. COPAXONE [Suspect]
     Active Substance: GLATIRAMER ACETATE
     Dosage: STRENGTH UNKNOWN
     Dates: start: 2013

REACTIONS (13)
  - Injection site scab [Recovered/Resolved with Sequelae]
  - Impaired healing [Recovered/Resolved with Sequelae]
  - Injection site warmth [Recovered/Resolved with Sequelae]
  - Thermal burn [Recovered/Resolved with Sequelae]
  - Injection site discolouration [Recovered/Resolved with Sequelae]
  - Injection site induration [Recovered/Resolved with Sequelae]
  - Injection site pain [Recovered/Resolved with Sequelae]
  - Injection site erythema [Recovered/Resolved with Sequelae]
  - Injection site scar [Recovered/Resolved with Sequelae]
  - Injection site haematoma [Recovered/Resolved with Sequelae]
  - Injection site inflammation [Recovered/Resolved with Sequelae]
  - Skin exfoliation [Recovered/Resolved with Sequelae]
  - Pigmentation disorder [Recovered/Resolved with Sequelae]

NARRATIVE: CASE EVENT DATE: 2017
